FAERS Safety Report 7372554-7 (Version None)
Quarter: 2011Q1

REPORT INFORMATION
  Report Type: 
  Country: None (occurrence: None)
  Receive Date: 20110324
  Receipt Date: 20110319
  Transmission Date: 20110831
  Serious: Yes (Other)
  Sender: FDA-Public Use
  Company Number: US-PFIZER INC-2010063165

PATIENT
  Sex: Female
  Weight: 54.422 kg

DRUGS (1)
  1. CHANTIX [Suspect]
     Indication: SMOKING CESSATION THERAPY
     Dosage: 1 MG, 2X/DAY
     Dates: start: 20100421, end: 20100515

REACTIONS (16)
  - FAECALOMA [None]
  - HAEMATOCHEZIA [None]
  - NAUSEA [None]
  - THROAT IRRITATION [None]
  - CONSTIPATION [None]
  - HAEMATEMESIS [None]
  - PARANOIA [None]
  - VOMITING [None]
  - FATIGUE [None]
  - AGITATION [None]
  - PYREXIA [None]
  - FEAR [None]
  - DEPRESSION [None]
  - HEADACHE [None]
  - ABDOMINAL PAIN [None]
  - MALAISE [None]
